FAERS Safety Report 16981587 (Version 2)
Quarter: 2020Q1

REPORT INFORMATION
  Report Type: Spontaneous
  Country: FR (occurrence: FR)
  Receive Date: 20191101
  Receipt Date: 20200110
  Transmission Date: 20200409
  Serious: Yes (Hospitalization)
  Sender: FDA-Public Use
  Company Number: FR-TEVA-2019-FR-1130325

PATIENT
  Age: 64 Year
  Sex: Male
  Weight: 80 kg

DRUGS (5)
  1. RAMIPRIL. [Concomitant]
     Active Substance: RAMIPRIL
     Dosage: 5 MG PER DAY
     Route: 048
  2. BISOPROLOL (FUMARATE ACIDE DE) [Suspect]
     Active Substance: BISOPROLOL FUMARATE
     Indication: STENT PLACEMENT
     Dosage: 2.5 MG PER DAY
     Route: 048
     Dates: start: 20190411, end: 20190424
  3. ATORVASTATINE [Concomitant]
     Active Substance: ATORVASTATIN
     Dosage: 20 MG PER DAY
     Route: 048
  4. RESITUNE 75 MG, COMPRIME GASTRO-RESISTANT [Concomitant]
     Active Substance: ASPIRIN
     Route: 048
  5. BRILIQUE 90 MG, COMPRIME ORODISPERSIBLE [Concomitant]
     Active Substance: TICAGRELOR
     Dosage: 2 DOSAGE FORMS PER DAY
     Route: 048
     Dates: end: 20190529

REACTIONS (2)
  - Atrioventricular block [Recovered/Resolved]
  - Dyspnoea [Recovered/Resolved]

NARRATIVE: CASE EVENT DATE: 20190424
